FAERS Safety Report 5603142-8 (Version None)
Quarter: 2008Q1

REPORT INFORMATION
  Report Type: 
  Country: None (occurrence: None)
  Receive Date: 20080125
  Receipt Date: 20080116
  Transmission Date: 20080703
  Serious: Yes (Other)
  Sender: FDA-Public Use
  Company Number: PR-PFIZER INC-2008005989

PATIENT
  Sex: Female

DRUGS (2)
  1. LYRICA [Suspect]
  2. SKELAXIN [Concomitant]

REACTIONS (1)
  - FACIAL PALSY [None]
